FAERS Safety Report 7209783-9 (Version None)
Quarter: 2011Q1

REPORT INFORMATION
  Report Type: 
  Country: None (occurrence: None)
  Receive Date: 20110104
  Receipt Date: 20101228
  Transmission Date: 20110831
  Serious: Yes (Other)
  Sender: FDA-Public Use
  Company Number: US-RB-019531-10

PATIENT
  Age: 31 Year
  Sex: Female

DRUGS (1)
  1. SUBOXONE [Suspect]
     Indication: PRODUCT USED FOR UNKNOWN INDICATION
     Dosage: DOSING INFORMATION UNKNOWN / SUBLINGUAL FILM
     Route: 065
     Dates: start: 20100101

REACTIONS (8)
  - THYROID MASS [None]
  - VISION BLURRED [None]
  - HYPOAESTHESIA [None]
  - DRY SKIN [None]
  - MUSCLE RIGIDITY [None]
  - INFLUENZA LIKE ILLNESS [None]
  - HERPES VIRUS INFECTION [None]
  - PARAESTHESIA [None]
